FAERS Safety Report 7908393-5 (Version None)
Quarter: 2011Q4

REPORT INFORMATION
  Report Type: 
  Country: None (occurrence: None)
  Receive Date: 20111111
  Receipt Date: 20111102
  Transmission Date: 20120403
  Serious: Yes (Other)
  Sender: FDA-Public Use
  Company Number: JP-JNJFOC-20111012926

PATIENT
  Age: 81 Year
  Sex: Female

DRUGS (5)
  1. NEU-UP [Concomitant]
     Route: 065
  2. OXYCONTIN [Concomitant]
     Route: 048
     Dates: end: 20111014
  3. FENTANYL-100 [Suspect]
     Indication: CANCER PAIN
     Route: 062
     Dates: start: 20111011
  4. MUCOSIL-10 [Concomitant]
     Route: 048
  5. HALOPERIDOL [Suspect]
     Indication: PRODUCT USED FOR UNKNOWN INDICATION
     Route: 048
     Dates: start: 20111011, end: 20111021

REACTIONS (1)
  - WHITE BLOOD CELL COUNT DECREASED [None]
